FAERS Safety Report 9773471 (Version 2)
Quarter: 2014Q3

REPORT INFORMATION
  Report Type: Spontaneous
  Country: US (occurrence: US)
  Receive Date: 20131219
  Receipt Date: 20140819
  Transmission Date: 20150326
  Serious: Yes (Hospitalization, Other)
  Sender: FDA-Public Use
  Company Number: US-009507513-1312USA007775

PATIENT
  Sex: Female

DRUGS (1)
  1. NUVARING [Suspect]
     Active Substance: ETHINYL ESTRADIOL\ETONOGESTREL
     Indication: DYSMENORRHOEA
     Dosage: UNK, 3 WEEKS ON, 1 WEEK OFF
     Route: 067
     Dates: start: 20120414, end: 20120504

REACTIONS (8)
  - Thrombosis [Unknown]
  - Off label use [Unknown]
  - Feeling cold [Unknown]
  - Tearfulness [Unknown]
  - Sinus bradycardia [Unknown]
  - Influenza like illness [Recovered/Resolved]
  - Abdominal discomfort [Recovered/Resolved]
  - Pulmonary embolism [Unknown]

NARRATIVE: CASE EVENT DATE: 20120414
